FAERS Safety Report 14543449 (Version 1)
Quarter: 2018Q1

REPORT INFORMATION
  Report Type: Spontaneous
  Country: US (occurrence: US)
  Receive Date: 20180216
  Receipt Date: 20180216
  Transmission Date: 20180509
  Serious: Yes (Hospitalization)
  Sender: FDA-Public Use
  Company Number: US-ELI_LILLY_AND_COMPANY-US201802003010

PATIENT
  Age: 46 Year
  Sex: Male
  Weight: 116 kg

DRUGS (1)
  1. TRULICITY [Suspect]
     Active Substance: DULAGLUTIDE
     Indication: TYPE 2 DIABETES MELLITUS
     Dosage: 1.5 MG, WEEKLY (1/W)
     Route: 058
     Dates: start: 20170403, end: 20171026

REACTIONS (7)
  - Pancreatic pseudocyst [Unknown]
  - Pancreatic abscess [Unknown]
  - Pancreatitis acute [Unknown]
  - Pancreatic mass [Unknown]
  - Pancreas infection [Unknown]
  - Lipase increased [Unknown]
  - Sepsis [Unknown]

NARRATIVE: CASE EVENT DATE: 20171004
